FAERS Safety Report 8004034-X (Version None)
Quarter: 2011Q4

REPORT INFORMATION
  Report Type: 
  Country: None (occurrence: None)
  Receive Date: 20111222
  Receipt Date: 20111219
  Transmission Date: 20120403
  Serious: Yes (Other)
  Sender: FDA-Public Use
  Company Number: GB-MERCK-1112GBR00057

PATIENT
  Age: 46 Year
  Sex: Male
  Weight: 106 kg

DRUGS (6)
  1. GABAPENTIN [Concomitant]
     Indication: PAIN IN EXTREMITY
     Route: 048
     Dates: start: 20090828
  2. OMEPRAZOLE [Concomitant]
     Route: 048
     Dates: start: 20080502
  3. SIMVASTATIN [Concomitant]
     Indication: BLOOD CHOLESTEROL INCREASED
     Route: 048
     Dates: start: 20080213
  4. METFORMIN [Concomitant]
     Route: 048
     Dates: start: 20080213
  5. NAPROXEN [Concomitant]
     Indication: PAIN
     Route: 048
     Dates: start: 20080502
  6. JANUVIA [Suspect]
     Indication: BLOOD GLUCOSE INCREASED
     Route: 048
     Dates: start: 20101027

REACTIONS (1)
  - PARANOIA [None]
